FAERS Safety Report 18272811 (Version 1)
Quarter: 2020Q3

REPORT INFORMATION
  Report Type: Spontaneous
  Country: US (occurrence: US)
  Receive Date: 20200916
  Receipt Date: 20200916
  Transmission Date: 20201103
  Serious: Yes (Other)
  Sender: FDA-Public Use
  Company Number: None

PATIENT
  Age: 32 Year
  Sex: Female
  Weight: 63.45 kg

DRUGS (1)
  1. AIMOVIG [Suspect]
     Active Substance: ERENUMAB-AOOE
     Indication: MIGRAINE
     Dosage: ?          OTHER FREQUENCY:Q MONTH;?
     Route: 058
     Dates: start: 20200407, end: 20200909

REACTIONS (3)
  - Injection site reaction [None]
  - Injection site erythema [None]
  - Injection site inflammation [None]

NARRATIVE: CASE EVENT DATE: 20200913
